FAERS Safety Report 8115503-6 (Version None)
Quarter: 2012Q1

REPORT INFORMATION
  Report Type: 
  Country: None (occurrence: None)
  Receive Date: 20120206
  Receipt Date: 20120131
  Transmission Date: 20120608
  Serious: Yes (Other)
  Sender: FDA-Public Use
  Company Number: US-PFIZER INC-2012026349

PATIENT
  Sex: Female
  Weight: 113 kg

DRUGS (5)
  1. DIOVAN [Concomitant]
     Indication: HYPERTENSION
     Dosage: 12.5 MG DAILY
  2. EFFEXOR XR [Suspect]
     Indication: DEPRESSION
     Dosage: 150 MG, DAILY
     Dates: start: 20070101
  3. ATENOLOL [Suspect]
     Indication: HEART RATE IRREGULAR
     Dosage: 100 MG, DAILY
  4. CELEBREX [Concomitant]
     Indication: ARTHRITIS
     Dosage: 200 MG, DAILY
  5. TOVIAZ [Concomitant]
     Indication: URINARY INCONTINENCE
     Dosage: 8 MG, DAILY

REACTIONS (2)
  - DIABETES MELLITUS [None]
  - HEART RATE IRREGULAR [None]
